FAERS Safety Report 20043339 (Version 1)
Quarter: 2021Q4

REPORT INFORMATION
  Report Type: Spontaneous
  Country: US (occurrence: US)
  Receive Date: 20211108
  Receipt Date: 20211108
  Transmission Date: 20220303
  Serious: No
  Sender: FDA-Public Use
  Company Number: US-PERRIGO-21US011499

PATIENT
  Age: 58 Year
  Sex: Female
  Weight: 63.492 kg

DRUGS (7)
  1. MESALAMINE [Suspect]
     Active Substance: MESALAMINE
     Indication: Colitis ulcerative
     Dosage: 4 G, SINGLE
     Route: 054
     Dates: start: 20210810, end: 20210810
  2. MESALAMINE [Suspect]
     Active Substance: MESALAMINE
     Dosage: 4 G, SINGLE
     Route: 054
     Dates: start: 20210814, end: 20210814
  3. MESALAMINE [Concomitant]
     Active Substance: MESALAMINE
     Indication: Colitis ulcerative
     Dosage: UNK
     Route: 048
     Dates: start: 202108
  4. BENADRYL                           /00945501/ [Concomitant]
     Indication: Insomnia
     Dosage: PRN
     Route: 065
  5. MILK OF MAGNESIA [Concomitant]
     Active Substance: MAGNESIUM HYDROXIDE
     Indication: Constipation
     Dosage: PRN
     Route: 065
  6. TYLENOL                            /00020001/ [Concomitant]
     Indication: Headache
     Dosage: PRN
     Route: 065
  7. ALBUTEROL                          /00139501/ [Concomitant]
     Indication: Respiratory disorder
     Dosage: PRN
     Route: 055

REACTIONS (4)
  - Frequent bowel movements [Not Recovered/Not Resolved]
  - Rectal haemorrhage [Not Recovered/Not Resolved]
  - Gastrointestinal pain [Not Recovered/Not Resolved]
  - Proctalgia [Not Recovered/Not Resolved]

NARRATIVE: CASE EVENT DATE: 20210811
